FAERS Safety Report 26058969 (Version 1)
Quarter: 2025Q4

REPORT INFORMATION
  Report Type: Spontaneous
  Country: US (occurrence: US)
  Receive Date: 20251118
  Receipt Date: 20251118
  Transmission Date: 20260117
  Serious: No
  Sender: COLLEGIUM PHARMACEUTICAL
  Company Number: US-COLLEGIUM PHARMACEUTICAL, INC.-20250902578

PATIENT

DRUGS (2)
  1. BELBUCA [Suspect]
     Active Substance: BUPRENORPHINE HYDROCHLORIDE
     Indication: Pain management
     Dosage: 750 MICROGRAM, UNKNOWN
     Route: 002
     Dates: start: 20240214, end: 20240515
  2. BELBUCA [Suspect]
     Active Substance: BUPRENORPHINE HYDROCHLORIDE
     Dosage: 900 MICROGRAM, BID (Q12 HOURS)
     Route: 002
     Dates: start: 202405

REACTIONS (2)
  - Pain [Unknown]
  - Product packaging quantity issue [None]

NARRATIVE: CASE EVENT DATE: 20240101
